FAERS Safety Report 5759320-0 (Version None)
Quarter: 2008Q2

REPORT INFORMATION
  Report Type: 
  Country: None (occurrence: None)
  Receive Date: 20080530
  Receipt Date: 20080520
  Transmission Date: 20081010
  Serious: Yes (Death, Hospitalization)
  Sender: FDA-Public Use
  Company Number: 2008-01045

PATIENT
  Age: 62 Year
  Sex: Female
  Weight: 52 kg

DRUGS (13)
  1. VELCADE [Suspect]
     Indication: MULTIPLE MYELOMA
     Dosage: 1.3 MG/M2, INTRAVENOUS
     Route: 042
     Dates: start: 20071225, end: 20080203
  2. DEXAMETHASONE TAB [Suspect]
     Indication: MULTIPLE MYELOMA
     Dosage: 40 MG, ORAL
     Route: 048
     Dates: start: 20071225, end: 20080106
  3. LISINOPRIL [Concomitant]
  4. CRESTOR [Concomitant]
  5. ZELITREX [Concomitant]
  6. PHOS-EX (CALCIUM ACETATE) [Concomitant]
  7. RENAGEL [Concomitant]
  8. CARBASALATE CALCIUM (CARBASALATE CALCIUM) [Concomitant]
  9. MULTIVIT (VITAMINS NOS) [Concomitant]
  10. IMODIUM [Concomitant]
  11. SLOW-K [Concomitant]
  12. ACETAMINOPHEN [Concomitant]
  13. NEXIUM [Concomitant]

REACTIONS (5)
  - DISEASE PROGRESSION [None]
  - EPILEPSY [None]
  - HYPERTENSION [None]
  - RESPIRATORY FAILURE [None]
  - REVERSIBLE POSTERIOR LEUKOENCEPHALOPATHY SYNDROME [None]
